FAERS Safety Report 24840532 (Version 2)
Quarter: 2025Q1

REPORT INFORMATION
  Report Type: Spontaneous
  Country: BG (occurrence: BG)
  Receive Date: 20250114
  Receipt Date: 20250213
  Transmission Date: 20250409
  Serious: Yes (Hospitalization, Disabling, Other)
  Sender: INCYTE
  Company Number: BG-002147023-NVSC2025BG004178

PATIENT

DRUGS (2)
  1. RUXOLITINIB [Suspect]
     Active Substance: RUXOLITINIB
     Indication: Myelofibrosis
     Dosage: 15 MG, BID (2X15 MG)
     Route: 048
     Dates: start: 20241221
  2. RUXOLITINIB [Suspect]
     Active Substance: RUXOLITINIB
     Dosage: 10 MG, BID (2X10 MG)
     Route: 048
     Dates: start: 20250119

REACTIONS (5)
  - Gait disturbance [Unknown]
  - White blood cell count decreased [Unknown]
  - Soft tissue swelling [Recovering/Resolving]
  - Haemoglobin decreased [Unknown]
  - Platelet count decreased [Unknown]

NARRATIVE: CASE EVENT DATE: 20241230
